FAERS Safety Report 5216381-5 (Version None)
Quarter: 2007Q1

REPORT INFORMATION
  Report Type: 
  Country: None (occurrence: None)
  Receive Date: 20070123
  Receipt Date: 20070116
  Transmission Date: 20070707
  Serious: Yes (Hospitalization, Other)
  Sender: FDA-Public Use
  Company Number: US-AMGEN-US166510

PATIENT
  Sex: Female
  Weight: 57.2 kg

DRUGS (6)
  1. ARANESP [Suspect]
     Indication: HEPATITIS C
     Dates: start: 20050718, end: 20060110
  2. PROCRIT [Suspect]
     Indication: HEPATITIS C
     Dates: start: 20050401, end: 20050621
  3. FOLIC ACID [Concomitant]
  4. PREMARIN [Concomitant]
  5. INTERFERON [Concomitant]
     Dates: start: 20040701, end: 20050401
  6. VITAMIN B-12 [Concomitant]

REACTIONS (3)
  - ANAEMIA [None]
  - ANTI-ERYTHROPOIETIN ANTIBODY POSITIVE [None]
  - PARVOVIRUS B19 SEROLOGY POSITIVE [None]
